FAERS Safety Report 21291150 (Version 1)
Quarter: 2022Q3

REPORT INFORMATION
  Report Type: Spontaneous
  Country: FR (occurrence: FR)
  Receive Date: 20220903
  Receipt Date: 20220903
  Transmission Date: 20221027
  Serious: Yes (Hospitalization)
  Sender: FDA-Public Use
  Company Number: None

PATIENT
  Age: 75 Year
  Sex: Female
  Weight: 90 kg

DRUGS (5)
  1. CARBOPLATIN [Suspect]
     Active Substance: CARBOPLATIN
     Indication: Endometrial adenocarcinoma
     Dosage: STRENGTH: 10 MG/ ML
     Dates: start: 20220329, end: 20220329
  2. ONDANSETRON [Concomitant]
     Active Substance: ONDANSETRON
     Indication: Chemotherapy side effect prophylaxis
     Dosage: STRENGTH: 2 MG/ML
     Dates: start: 20220329, end: 20220329
  3. METHYLPREDNISOLONE [Concomitant]
     Active Substance: METHYLPREDNISOLONE
     Indication: Chemotherapy side effect prophylaxis
     Dosage: STRENGTH: 40 MG,  (IM-IV)
     Dates: start: 20220329, end: 20220329
  4. POLARAMINE [Concomitant]
     Active Substance: DEXCHLORPHENIRAMINE MALEATE
     Indication: Chemotherapy side effect prophylaxis
     Dosage: STRENGTH: 5 MG/1 ML
     Dates: start: 20220329, end: 20220329
  5. PACLITAXEL [Concomitant]
     Active Substance: PACLITAXEL
     Indication: Endometrial adenocarcinoma
     Dosage: STRENGTH:  6 MG/ML
     Dates: start: 20220329, end: 20220329

REACTIONS (1)
  - Infusion related reaction [Recovered/Resolved]

NARRATIVE: CASE EVENT DATE: 20220329
